FAERS Safety Report 18230019 (Version 4)
Quarter: 2020Q3

REPORT INFORMATION
  Report Type: Report from Study
  Country: None (occurrence: KR)
  Receive Date: 20200904
  Receipt Date: 20200915
  Transmission Date: 20201103
  Serious: Yes (Hospitalization)
  Sender: FDA-Public Use
  Company Number: KR-ABBVIE-20K-090-3549869-00

PATIENT
  Age: 68 Year
  Sex: Male
  Weight: 52 kg

DRUGS (2)
  1. URSA [Concomitant]
     Active Substance: URSODIOL
     Indication: HEPATOCELLULAR CARCINOMA
     Route: 048
     Dates: start: 20200228
  2. MAVIRET [Suspect]
     Active Substance: GLECAPREVIR\PIBRENTASVIR
     Indication: CHRONIC HEPATITIS C
     Route: 048
     Dates: start: 20200301, end: 20200506

REACTIONS (1)
  - Hepatocellular carcinoma [Recovering/Resolving]

NARRATIVE: CASE EVENT DATE: 20200609
